FAERS Safety Report 14894224 (Version 1)
Quarter: 2018Q2

REPORT INFORMATION
  Report Type: Spontaneous
  Country: PT (occurrence: PT)
  Receive Date: 20180515
  Receipt Date: 20180515
  Transmission Date: 20180711
  Serious: Yes (Disabling)
  Sender: FDA-Public Use
  Company Number: PHHY2018PT005764

PATIENT
  Age: 30 Year
  Sex: Female

DRUGS (1)
  1. MIOCHOL [Suspect]
     Active Substance: ACETYLCHOLINE CHLORIDE
     Indication: PUPIL CONSTRICTION PROCEDURE
     Dosage: 10 MG, QD
     Route: 031
     Dates: start: 20170630, end: 20170630

REACTIONS (12)
  - Pupillary disorder [Recovered/Resolved with Sequelae]
  - Iris disorder [Recovered/Resolved with Sequelae]
  - Corneal opacity [Recovered/Resolved with Sequelae]
  - Ocular hyperaemia [Recovered/Resolved with Sequelae]
  - Pupil fixed [Recovered/Resolved with Sequelae]
  - Eyelid oedema [Recovered/Resolved with Sequelae]
  - Toxic anterior segment syndrome [Recovered/Resolved with Sequelae]
  - Hypersensitivity [Recovered/Resolved with Sequelae]
  - Atrophy of globe [Unknown]
  - Corneal disorder [Recovered/Resolved with Sequelae]
  - Blindness [Unknown]
  - Corneal oedema [Recovered/Resolved with Sequelae]

NARRATIVE: CASE EVENT DATE: 20170701
